FAERS Safety Report 6480710-5 (Version None)
Quarter: 2009Q4

REPORT INFORMATION
  Report Type: 
  Country: None (occurrence: None)
  Receive Date: 20091208
  Receipt Date: 20090317
  Transmission Date: 20100525
  Serious: No
  Sender: FDA-Public Use
  Company Number: US-AMGEN-KDL336874

PATIENT
  Sex: Female

DRUGS (3)
  1. ENBREL [Suspect]
     Indication: RHEUMATOID ARTHRITIS
     Route: 058
     Dates: start: 20090228
  2. LEFLUNOMIDE [Concomitant]
     Route: 048
  3. BENZOYL PEROXIDE [Concomitant]
     Route: 061

REACTIONS (2)
  - RASH [None]
  - RASH PAPULAR [None]
